FAERS Safety Report 7116945-8 (Version None)
Quarter: 2010Q4

REPORT INFORMATION
  Report Type: 
  Country: None (occurrence: None)
  Receive Date: 20101115
  Receipt Date: 20101102
  Transmission Date: 20110411
  Serious: Yes (Hospitalization)
  Sender: FDA-Public Use
  Company Number: 2010IP000136

PATIENT
  Sex: Male

DRUGS (1)
  1. XIBROM [Suspect]
     Dosage: OPH
     Route: 047

REACTIONS (1)
  - ANAPHYLACTIC REACTION [None]
